APPROVED DRUG PRODUCT: LIDOCAINE
Active Ingredient: LIDOCAINE
Strength: 5%
Dosage Form/Route: PATCH;TOPICAL
Application: A200675 | Product #001 | TE Code: AB
Applicant: ACTAVIS LABORATORIES UT INC
Approved: Aug 23, 2012 | RLD: No | RS: No | Type: RX